FAERS Safety Report 9509713 (Version 1)
Quarter: 2013Q3

REPORT INFORMATION
  Report Type: Spontaneous
  Country: US (occurrence: US)
  Receive Date: 20130909
  Receipt Date: 20130909
  Transmission Date: 20140515
  Serious: No
  Sender: FDA-Public Use
  Company Number: US-BRISTOL-MYERS SQUIBB COMPANY-17165432

PATIENT
  Age: 50 Year
  Sex: Male
  Weight: 131.06 kg

DRUGS (3)
  1. ABILIFY [Suspect]
     Indication: DEPRESSION
     Dosage: STARTED IN 2004 OR 2005. RESTARTED IN BEGINNING OF APR2012(6MG), 10MG/DAY,ABILIFY 2MG ALSO TAKEN
  2. CYMBALTA [Suspect]
     Dosage: CAPSULE, DOSE WAS INCREASED TO 90MG; FOR 6-7 WEEKS
  3. ANAFRANIL [Suspect]
     Indication: DEPRESSION

REACTIONS (3)
  - Drug dose omission [Unknown]
  - Anxiety [Unknown]
  - Depression [Unknown]
